FAERS Safety Report 7701331 (Version 3)
Quarter: 2012Q4

REPORT INFORMATION
  Report Type: Report from Study
  Country: FR (occurrence: FR)
  Receive Date: 20101209
  Receipt Date: 20121123
  Transmission Date: 20130627
  Serious: Yes (Life-Threatening, Hospitalization)
  Sender: FDA-Public Use
  Company Number: FR-PFIZER INC-2010161289

PATIENT
  Age: 74 Year
  Sex: Male
  Weight: 85 kg

DRUGS (5)
  1. SUTENT [Suspect]
     Indication: METASTATIC RENAL CARCINOMA
     Dosage: 50 mg, 1x/day
     Route: 048
     Dates: start: 20100409, end: 20100430
  2. SUTENT [Suspect]
     Dosage: 25 mg, 1x/day
     Route: 048
     Dates: start: 20100607, end: 20100704
  3. SUTENT [Suspect]
     Dosage: 25 mg, 1x/day
     Route: 048
     Dates: start: 20100719, end: 20100815
  4. SUTENT [Suspect]
     Dosage: 25 mg, 1x/day
     Route: 048
     Dates: start: 20100830, end: 20100926
  5. SUTENT [Suspect]
     Dosage: 25 mg, 1x/day
     Route: 048
     Dates: start: 20101018, end: 20101112

REACTIONS (1)
  - Renal failure acute [Recovered/Resolved with Sequelae]
